FAERS Safety Report 6220395-6 (Version None)
Quarter: 2009Q2

REPORT INFORMATION
  Report Type: 
  Country: None (occurrence: None)
  Receive Date: 20090610
  Receipt Date: 20090527
  Transmission Date: 20091009
  Serious: Yes (Other)
  Sender: FDA-Public Use
  Company Number: BR-TEVA-197445ISR

PATIENT
  Sex: Female
  Weight: 82 kg

DRUGS (5)
  1. BUDESONIDE [Suspect]
     Indication: BRONCHITIS
     Route: 055
  2. BUDESONIDE [Suspect]
     Route: 055
     Dates: start: 20081201
  3. BUDESONIDE [Suspect]
     Route: 055
  4. SALBUTAMOL SULFATE [Suspect]
     Dosage: 1 SPOON
     Dates: start: 20090525
  5. FLUTICASONE PROPIONATE [Concomitant]
     Route: 045

REACTIONS (7)
  - DRUG EXPOSURE DURING PREGNANCY [None]
  - FLUID RETENTION [None]
  - SWELLING [None]
  - TACHYCARDIA [None]
  - TREMOR [None]
  - WEIGHT DECREASED [None]
  - WEIGHT INCREASED [None]
